FAERS Safety Report 7934929-4 (Version None)
Quarter: 2011Q4

REPORT INFORMATION
  Report Type: 
  Country: None (occurrence: None)
  Receive Date: 20111122
  Receipt Date: 20111119
  Transmission Date: 20120403
  Serious: Yes (Other)
  Sender: FDA-Public Use
  Company Number: BR-BAYER-2011-112032

PATIENT
  Sex: Female

DRUGS (3)
  1. PRELONE [Suspect]
  2. MOXIFLOXACIN [Suspect]
  3. SEKI [Suspect]

REACTIONS (10)
  - ABASIA [None]
  - HEART RATE INCREASED [None]
  - APPARENT DEATH [None]
  - OEDEMA MOUTH [None]
  - STOMATITIS [None]
  - MUSCULAR WEAKNESS [None]
  - LOSS OF CONSCIOUSNESS [None]
  - FEELING ABNORMAL [None]
  - EYE MOVEMENT DISORDER [None]
  - CARDIOVASCULAR DISORDER [None]
